FAERS Safety Report 19502764 (Version 1)
Quarter: 2021Q3

REPORT INFORMATION
  Report Type: Spontaneous
  Country: DE (occurrence: DE)
  Receive Date: 20210707
  Receipt Date: 20210707
  Transmission Date: 20211014
  Serious: Yes (Hospitalization, Other)
  Sender: FDA-Public Use
  Company Number: NVSC2021DE118666

PATIENT
  Age: 80 Year
  Sex: Female
  Weight: 71 kg

DRUGS (22)
  1. VALSARTAN. [Suspect]
     Active Substance: VALSARTAN
     Dosage: 160 MG, BID
     Route: 065
     Dates: start: 201005
  2. L?THYROXIN?HENNING [Concomitant]
     Active Substance: LEVOTHYROXINE SODIUM
     Indication: PRODUCT USED FOR UNKNOWN INDICATION
     Dosage: 125 DF, QD
     Route: 065
     Dates: start: 199003, end: 2018
  3. HYDROMORPHONE [Concomitant]
     Active Substance: HYDROMORPHONE
     Indication: PRODUCT USED FOR UNKNOWN INDICATION
     Dosage: 2 MG
     Route: 065
     Dates: start: 201902
  4. MACROGOL ABZ BALANCE [Concomitant]
     Active Substance: POLYETHYLENE GLYCOL 3350\POTASSIUM CHLORIDE\SODIUM BICARBONATE\SODIUM CHLORIDE
     Indication: PRODUCT USED FOR UNKNOWN INDICATION
     Dosage: UNK
     Route: 065
     Dates: start: 201902
  5. PARACETAMOL [Concomitant]
     Active Substance: ACETAMINOPHEN
     Indication: PRODUCT USED FOR UNKNOWN INDICATION
     Dosage: 1000 MG
     Route: 065
     Dates: start: 201903
  6. MIDAZOLAM. [Concomitant]
     Active Substance: MIDAZOLAM
     Indication: PRODUCT USED FOR UNKNOWN INDICATION
     Dosage: UNK
     Route: 065
     Dates: start: 201903
  7. VALSARTAN. [Suspect]
     Active Substance: VALSARTAN
     Dosage: 320 MG, QD
     Route: 065
     Dates: start: 201308, end: 201807
  8. IBUPROFEN. [Concomitant]
     Active Substance: IBUPROFEN
     Indication: PRODUCT USED FOR UNKNOWN INDICATION
     Dosage: 400 DF, BID
     Route: 065
  9. PANTOPRAZOLE [Concomitant]
     Active Substance: PANTOPRAZOLE
     Indication: PRODUCT USED FOR UNKNOWN INDICATION
     Dosage: 40 MG, QD
     Route: 065
     Dates: start: 201901
  10. HCT HEXAL [Concomitant]
     Active Substance: HYDROCHLOROTHIAZIDE
     Indication: PRODUCT USED FOR UNKNOWN INDICATION
     Dosage: UNK, QD (DOSE: ? TABLET OF 25 MG)
     Route: 048
     Dates: start: 20180524, end: 20180524
  11. VALSARTAN. [Suspect]
     Active Substance: VALSARTAN
     Indication: PRODUCT USED FOR UNKNOWN INDICATION
     Dosage: 160 MG, BID
     Route: 065
     Dates: start: 2005
  12. EUTHYROX [Concomitant]
     Active Substance: LEVOTHYROXINE SODIUM
     Indication: PRODUCT USED FOR UNKNOWN INDICATION
     Dosage: 125 DF, QD
     Route: 065
  13. BISOPROLOL COMP [Concomitant]
     Active Substance: BISOPROLOL FUMARATE\HYDROCHLOROTHIAZIDE
     Indication: PRODUCT USED FOR UNKNOWN INDICATION
     Dosage: UNK, QD (DOSE: ?X 10/25)
     Route: 065
     Dates: end: 201302
  14. ADVITAN [Concomitant]
     Indication: PRODUCT USED FOR UNKNOWN INDICATION
     Dosage: UNK
     Route: 065
     Dates: start: 2018
  15. FENTANYL CT [Concomitant]
     Indication: PRODUCT USED FOR UNKNOWN INDICATION
     Dosage: UNK (DOSE: 12 ?G/H)
     Route: 065
     Dates: start: 201903
  16. MOMETASONE [Concomitant]
     Active Substance: MOMETASONE
     Indication: PRODUCT USED FOR UNKNOWN INDICATION
     Dosage: 1 MG/G
     Route: 065
  17. DIGIMERCK MINOR [Concomitant]
     Active Substance: DIGITOXIN
     Indication: PRODUCT USED FOR UNKNOWN INDICATION
     Dosage: 0.07 DF
     Route: 065
     Dates: start: 201901
  18. FUROSEMID [Concomitant]
     Active Substance: FUROSEMIDE
     Indication: PRODUCT USED FOR UNKNOWN INDICATION
     Dosage: 40 MG, BID
     Route: 065
     Dates: start: 201903
  19. BISOPROLOL?RATIOPHARM [Concomitant]
     Active Substance: BISOPROLOL
     Indication: PRODUCT USED FOR UNKNOWN INDICATION
     Dosage: 5 MG, QD (STOPED ON 12 JUN 2018 BUT WAS ONGOING AT DISCHARGE FROM REHABILITATION)
     Route: 065
     Dates: start: 20180524
  20. FERROSANOL [Concomitant]
     Active Substance: FERROUS GLUCONATE
     Indication: PRODUCT USED FOR UNKNOWN INDICATION
     Dosage: 1 DF, QD
     Route: 065
  21. HALOPERIDOL NEURAXPHARM [Concomitant]
     Active Substance: HALOPERIDOL
     Indication: PRODUCT USED FOR UNKNOWN INDICATION
     Dosage: 30 ML
     Route: 065
     Dates: start: 201902
  22. TAVOR [Concomitant]
     Indication: PRODUCT USED FOR UNKNOWN INDICATION
     Dosage: 1 DF
     Route: 065
     Dates: start: 201902

REACTIONS (47)
  - Restlessness [Unknown]
  - Diarrhoea [Unknown]
  - Functional gastrointestinal disorder [Unknown]
  - Blood glucose decreased [Unknown]
  - Tinnitus [Unknown]
  - Colon adenoma [Unknown]
  - Fatigue [Unknown]
  - Post procedural hypothyroidism [Unknown]
  - Hypokalaemia [Unknown]
  - Anal incontinence [Not Recovered/Not Resolved]
  - Insomnia [Unknown]
  - Basal cell carcinoma [Recovered/Resolved]
  - Dizziness [Unknown]
  - Gastrointestinal inflammation [Unknown]
  - Peripheral swelling [Unknown]
  - Gastroenteritis [Unknown]
  - Abdominal pain [Unknown]
  - Fibroma [Unknown]
  - Aphthous ulcer [Unknown]
  - Erythema [Unknown]
  - Abscess limb [Unknown]
  - Weight decreased [Unknown]
  - Rash [Unknown]
  - Large intestine infection [Unknown]
  - Drug intolerance [Unknown]
  - Inflammation [Unknown]
  - Melanocytic naevus [Unknown]
  - Cerumen impaction [Unknown]
  - Rash pustular [Unknown]
  - Feeling hot [Unknown]
  - Drug hypersensitivity [Unknown]
  - Intestinal polyp [Unknown]
  - Asthenia [Unknown]
  - Steroid diabetes [Unknown]
  - General physical health deterioration [Recovering/Resolving]
  - Visual impairment [Unknown]
  - Vomiting [Unknown]
  - Haemorrhoids [Unknown]
  - Anal prolapse [Unknown]
  - Defaecation disorder [Unknown]
  - Skin induration [Unknown]
  - Hyperthermia [Unknown]
  - Anaemia [Unknown]
  - Iron deficiency [Unknown]
  - Dysuria [Recovered/Resolved]
  - Pruritus [Unknown]
  - Weight increased [Recovering/Resolving]

NARRATIVE: CASE EVENT DATE: 2007
